FAERS Safety Report 17220146 (Version 1)
Quarter: 2019Q4

REPORT INFORMATION
  Report Type: Spontaneous
  Country: US (occurrence: US)
  Receive Date: 20191231
  Receipt Date: 20191231
  Transmission Date: 20200122
  Serious: No
  Sender: FDA-Public Use
  Company Number: US-LEO PHARMA-327260

PATIENT
  Sex: Female

DRUGS (1)
  1. SKINOREN CUTANEOUS FOAM [Suspect]
     Active Substance: AZELAIC ACID
     Indication: PRODUCT USED FOR UNKNOWN INDICATION
     Route: 061

REACTIONS (1)
  - Hypersensitivity [Unknown]
